FAERS Safety Report 7264845-5 (Version None)
Quarter: 2011Q1

REPORT INFORMATION
  Report Type: 
  Country: None (occurrence: None)
  Receive Date: 20110131
  Receipt Date: 20110117
  Transmission Date: 20110831
  Serious: Yes (Death, Other)
  Sender: FDA-Public Use
  Company Number: PHHY2011DE05808

PATIENT
  Sex: Female
  Weight: 64 kg

DRUGS (9)
  1. TAVANIC [Concomitant]
     Dosage: 500MG PER DAY
     Route: 048
  2. PHENHYDAN [Concomitant]
     Dosage: UNK
     Route: 048
  3. DELIX [Concomitant]
     Dosage: 5MG PER DAY
  4. CGS 20267 [Suspect]
     Indication: BREAST CANCER
     Dosage: 2.5 MG, DAILY
     Route: 048
     Dates: start: 20090316
  5. ESIDRIX [Concomitant]
     Dosage: 25MG PER DAY
     Route: 048
  6. DEXAMETHASONE [Concomitant]
     Dosage: 24 MG PER DAY
  7. PANTOZOL [Concomitant]
     Dosage: 40 MG PER DAY
     Route: 048
  8. BELOC ZOK [Concomitant]
     Dosage: UNK
     Route: 048
  9. HEPARIN [Concomitant]
     Dosage: 750 IE, 2X1PER DAY
     Route: 058

REACTIONS (4)
  - METASTASES TO CENTRAL NERVOUS SYSTEM [None]
  - CONVULSION [None]
  - DYSPHAGIA [None]
  - PNEUMONIA [None]
